FAERS Safety Report 16480236 (Version 2)
Quarter: 2019Q3

REPORT INFORMATION
  Report Type: Spontaneous
  Country: RU (occurrence: RU)
  Receive Date: 20190626
  Receipt Date: 20190712
  Transmission Date: 20191004
  Serious: Yes (Other)
  Sender: FDA-Public Use
  Company Number: PHHY2019RU143539

PATIENT
  Sex: Female

DRUGS (2)
  1. CEFAZOLIN [Suspect]
     Active Substance: CEFAZOLIN
     Indication: ANTIBIOTIC THERAPY
     Dosage: 2 G, UNK (AT ADMISSION)
     Route: 040
  2. CEFAZOLIN [Suspect]
     Active Substance: CEFAZOLIN
     Dosage: 1 G, Q6H
     Route: 030

REACTIONS (2)
  - Endometritis decidual [Unknown]
  - Maternal exposure during delivery [Unknown]
